FAERS Safety Report 23420369 (Version 1)
Quarter: 2024Q1

REPORT INFORMATION
  Report Type: Spontaneous
  Country: CA (occurrence: CA)
  Receive Date: 20240119
  Receipt Date: 20240119
  Transmission Date: 20240410
  Serious: Yes (Other)
  Sender: FDA-Public Use
  Company Number: None

PATIENT
  Age: 45 Year
  Sex: Female

DRUGS (2)
  1. METHOTREXATE SODIUM [Suspect]
     Active Substance: METHOTREXATE SODIUM
     Indication: Product used for unknown indication
  2. DROSPIRENONE [Suspect]
     Active Substance: DROSPIRENONE
     Indication: Product used for unknown indication

REACTIONS (2)
  - Drug interaction [Unknown]
  - Hepatic enzyme increased [Unknown]
